FAERS Safety Report 25551460 (Version 1)
Quarter: 2025Q3

REPORT INFORMATION
  Report Type: Spontaneous
  Country: US (occurrence: None)
  Receive Date: 20250711
  Receipt Date: 20250711
  Transmission Date: 20251021
  Serious: Yes (Other)
  Sender: FDA-CTU
  Company Number: None

PATIENT
  Age: 52 Year
  Sex: Female

DRUGS (1)
  1. PAROXETINE [Suspect]
     Active Substance: PAROXETINE
     Indication: Postpartum anxiety
     Dates: start: 20061001

REACTIONS (8)
  - Withdrawal syndrome [None]
  - Akathisia [None]
  - Loss of personal independence in daily activities [None]
  - Asthenia [None]
  - Seizure [None]
  - Palpitations [None]
  - Memory impairment [None]
  - Electric shock sensation [None]

NARRATIVE: CASE EVENT DATE: 20150501
